FAERS Safety Report 23507018 (Version 1)
Quarter: 2024Q1

REPORT INFORMATION
  Report Type: Spontaneous
  Country: US (occurrence: US)
  Receive Date: 20240209
  Receipt Date: 20240209
  Transmission Date: 20240410
  Serious: No
  Sender: FDA-Public Use
  Company Number: CID000000000042940

PATIENT

DRUGS (1)
  1. DIAZEPAM [Suspect]
     Active Substance: DIAZEPAM
     Indication: Product used for unknown indication
     Dosage: I HAVE A PATIENT EXPERIENCING ALLERGIC TYPE HEADACHE WITH TEVA DIAZEPAM 2 MG TABLET, AND NO PROBL...
     Route: 048

REACTIONS (1)
  - Headache [Unknown]
